FAERS Safety Report 11244842 (Version 1)
Quarter: 2015Q3

REPORT INFORMATION
  Report Type: Spontaneous
  Country: US (occurrence: US)
  Receive Date: 20150707
  Receipt Date: 20150707
  Transmission Date: 20151125
  Serious: No
  Sender: FDA-Public Use
  Company Number: US-TARO-2015TAR00381

PATIENT
  Age: 81 Year
  Sex: Female
  Weight: 47.62 kg

DRUGS (18)
  1. ACETAZOLAMIDE TABLETS 250 MG [Suspect]
     Active Substance: ACETAZOLAMIDE
     Indication: PULMONARY HYPERTENSION
     Dosage: 250 MG, 1X/DAY
     Route: 048
     Dates: start: 201503
  2. ACETAZOLAMIDE TABLETS 250 MG [Suspect]
     Active Substance: ACETAZOLAMIDE
     Indication: CARBON DIOXIDE INCREASED
     Dosage: 250 MG, 2X/WEEK
     Route: 048
  3. CALCIUM [Concomitant]
     Active Substance: CALCIUM
  4. OLIVE EXTRACT [Concomitant]
  5. DIGESTIVE ENZYMES [Concomitant]
     Active Substance: UNSPECIFIED INGREDIENT
  6. FISH OIL [Concomitant]
     Active Substance: FISH OIL
  7. L-CARNITINE [Concomitant]
     Active Substance: LEVOCARNITINE
  8. ACETAZOLAMIDE TABLETS 250 MG [Suspect]
     Active Substance: ACETAZOLAMIDE
     Dosage: 250 MG, 3X/WEEK
     Route: 048
  9. CARDIZEM [Concomitant]
     Active Substance: DILTIAZEM HYDROCHLORIDE
  10. MAGNESIUM [Concomitant]
     Active Substance: MAGNESIUM
  11. GENTLE IRON [Concomitant]
  12. D-RIBOSE [Concomitant]
     Active Substance: DIETARY SUPPLEMENT
  13. ACETAZOLAMIDE TABLETS 250 MG [Suspect]
     Active Substance: ACETAZOLAMIDE
     Indication: CARDIAC FAILURE CONGESTIVE
     Dosage: 250 MG, EVERY 48 HOURS
     Route: 048
  14. ACETAZOLAMIDE TABLETS 250 MG [Suspect]
     Active Substance: ACETAZOLAMIDE
     Indication: CARBON DIOXIDE INCREASED
     Dosage: 125 MG, EVERY 48 HOURS
  15. LASIX [Concomitant]
     Active Substance: FUROSEMIDE
  16. VITAMIN C [Concomitant]
     Active Substance: ASCORBIC ACID
  17. BABY ASPIRIN [Concomitant]
     Active Substance: ASPIRIN
  18. VITAMIN B COMPLEX [Concomitant]
     Active Substance: CYANOCOBALAMIN\DEXPANTHENOL\NIACINAMIDE\PYRIDOXINE HYDROCHLORIDE\RIBOFLAVIN 5^-PHOSPHATE SODIUM\THIAMINE HYDROCHLORIDE\VITAMIN B COMPLEX

REACTIONS (1)
  - Nausea [Not Recovered/Not Resolved]

NARRATIVE: CASE EVENT DATE: 201503
